FAERS Safety Report 9221690 (Version 1)
Quarter: 2013Q1

REPORT INFORMATION
  Report Type: Spontaneous
  Country: US (occurrence: None)
  Receive Date: 20120907
  Receipt Date: 20120907
  Transmission Date: 20140127
  Serious: Yes (Other)
  Sender: FDA-Public Use
  Company Number: TH-2012-00217

PATIENT
  Age: 66 Year
  Sex: Male

DRUGS (1)
  1. EGRIFTA [Suspect]
     Indication: PRODUCT USED FOR UNKNOWN INDICATION
     Dates: start: 2010

REACTIONS (6)
  - Insulin-like growth factor increased [None]
  - Cardiac pacemaker insertion [None]
  - Embolism [None]
  - Asthenia [None]
  - Activities of daily living impaired [None]
  - Weight decreased [None]
